FAERS Safety Report 9563556 (Version 1)
Quarter: 2013Q1

REPORT INFORMATION
  Report Type: Spontaneous
  Country: US (occurrence: None)
  Receive Date: 20121227
  Receipt Date: 20121227
  Transmission Date: 20140127
  Serious: Yes (Hospitalization)
  Sender: FDA-Public Use
  Company Number: PHEH2012US001223

PATIENT
  Age: 27 Year
  Sex: Male

DRUGS (4)
  1. EXJADE (*CGP 72670*) [Suspect]
     Indication: SICKLE CELL ANAEMIA
     Dosage: UNK, UNK, UNK
  2. HYDREA (HYDROXYCARBAMIDE) [Concomitant]
  3. OXYCONTIN (OXYCODONE HYDROCHLORIDE) [Concomitant]
  4. OXYIR (OXYCODONE HYDROCHLORIDE) [Concomitant]

REACTIONS (1)
  - Sickle cell anaemia with crisis [None]
